FAERS Safety Report 4767807-2 (Version None)
Quarter: 2005Q3

REPORT INFORMATION
  Report Type: 
  Country: None (occurrence: None)
  Receive Date: 20050912
  Receipt Date: 20050831
  Transmission Date: 20060218
  Serious: Yes (Hospitalization)
  Sender: FDA-Public Use
  Company Number: HQWYE234802SEP05

PATIENT
  Age: 60 Year
  Sex: Male

DRUGS (13)
  1. RAPAMUNE [Suspect]
     Indication: IMMUNOSUPPRESSANT DRUG THERAPY
     Dosage: 2 M G 1X PER 1 DAY ORAL
     Route: 048
     Dates: start: 20050530, end: 20050829
  2. RAPAMUNE [Suspect]
     Indication: PROPHYLAXIS AGAINST TRANSPLANT REJECTION
     Dosage: 2 M G 1X PER 1 DAY ORAL
     Route: 048
     Dates: start: 20050530, end: 20050829
  3. METHYLPREDNISOLONE [Concomitant]
  4. OMEPRAZOLE [Concomitant]
  5. LASIX [Concomitant]
  6. TORVAST (ATORVASTATIN CALCIUM) [Concomitant]
  7. ATENOLOL [Concomitant]
  8. POTASSIUM CHLORIDE [Concomitant]
  9. ALLOPURINOL [Concomitant]
  10. MYCOPHENOLATE MOFETIL (MYCOPHENOLATE MOFETIL) [Concomitant]
  11. CALCIUM CARBONATE (CALCIUM CARBONATE) [Concomitant]
  12. CALCITRIOL [Concomitant]
  13. CASODEX [Concomitant]

REACTIONS (3)
  - DYSPNOEA [None]
  - HYPERVOLAEMIA [None]
  - OEDEMA PERIPHERAL [None]
